FAERS Safety Report 9386197 (Version 1)
Quarter: 2013Q3

REPORT INFORMATION
  Report Type: Spontaneous
  Country: PL (occurrence: PL)
  Receive Date: 20130708
  Receipt Date: 20130708
  Transmission Date: 20140515
  Serious: Yes (Other)
  Sender: FDA-Public Use
  Company Number: PL-AMGEN-POLSP2013047055

PATIENT
  Age: 62 Year
  Sex: Male

DRUGS (1)
  1. PANITUMUMAB [Suspect]
     Indication: PRODUCT USED FOR UNKNOWN INDICATION
     Dosage: 6 MG/KG, 8 COURSES 6MG/KG
     Route: 065
     Dates: start: 201303

REACTIONS (3)
  - Metastases to liver [Unknown]
  - Skin reaction [Unknown]
  - Hypokalaemia [Unknown]
